FAERS Safety Report 16093956 (Version 3)
Quarter: 2019Q2

REPORT INFORMATION
  Report Type: Report from Study
  Country: ZA (occurrence: ZA)
  Receive Date: 20190320
  Receipt Date: 20190503
  Transmission Date: 20190711
  Serious: Yes (Life-Threatening, Hospitalization)
  Sender: FDA-Public Use
  Company Number: ZA-SAKK-2019SA040587AA

PATIENT
  Age: 66 Year
  Sex: Female

DRUGS (5)
  1. OPTISULIN (INSULIN GLARGINE) [Suspect]
     Active Substance: INSULIN GLARGINE
     Dosage: 12 U, HS
     Dates: start: 20190211
  2. TOUJEO [Concomitant]
     Active Substance: INSULIN GLARGINE
     Dosage: 10 U, HS
     Dates: start: 20190211
  3. NO STUDY DRUG GIVEN [Suspect]
     Active Substance: UNSPECIFIED INGREDIENT
     Dosage: UNK UNK, UNK
     Route: 065
  4. SINTAIR [Concomitant]
     Dosage: 10 MG, AFTER SLEEP (AS)
     Dates: start: 20190211
  5. ZARTAN [Concomitant]
     Active Substance: LOSARTAN POTASSIUM
     Dosage: 50 MG, AS
     Dates: start: 20190211

REACTIONS (8)
  - Swelling face [Not Recovered/Not Resolved]
  - Sneezing [Not Recovered/Not Resolved]
  - Angiogram [Unknown]
  - Hypoglycaemia [Not Recovered/Not Resolved]
  - Cough [Not Recovered/Not Resolved]
  - Influenza like illness [Not Recovered/Not Resolved]
  - Hypersensitivity [Not Recovered/Not Resolved]
  - Wound haematoma [Not Recovered/Not Resolved]

NARRATIVE: CASE EVENT DATE: 20190308
